FAERS Safety Report 6400910-X (Version None)
Quarter: 2009Q4

REPORT INFORMATION
  Report Type: 
  Country: None (occurrence: None)
  Receive Date: 20091009
  Receipt Date: 20090925
  Transmission Date: 20100525
  Serious: Yes (Other)
  Sender: FDA-Public Use
  Company Number: 231340J09USA

PATIENT
  Age: 52 Year
  Sex: Female
  Weight: 104 kg

DRUGS (6)
  1. REBIF [Suspect]
     Indication: MULTIPLE SCLEROSIS
     Dosage: 44 MCG, 3 IN 1 WEEKS, SUBCUTANEOUS
     Route: 058
     Dates: start: 20080801, end: 20081101
  2. REBIF [Suspect]
     Indication: MULTIPLE SCLEROSIS
     Dosage: 44 MCG, 3 IN 1 WEEKS, SUBCUTANEOUS
     Route: 058
     Dates: start: 20090501, end: 20090901
  3. INSULIN (INSULIN) [Concomitant]
  4. COREG [Concomitant]
  5. FUROSEMIDE [Concomitant]
  6. ACCUPRIL [Concomitant]

REACTIONS (4)
  - BLOOD URINE PRESENT [None]
  - CYSTITIS [None]
  - INTERVERTEBRAL DISC DISORDER [None]
  - STAPHYLOCOCCAL INFECTION [None]
